FAERS Safety Report 8537098-5 (Version None)
Quarter: 2012Q3

REPORT INFORMATION
  Report Type: 
  Country: None (occurrence: None)
  Receive Date: 20120725
  Receipt Date: 20120713
  Transmission Date: 20120928
  Serious: Yes (Hospitalization)
  Sender: FDA-Public Use
  Company Number: US-PFIZER INC-2012146024

PATIENT
  Age: 33 Year
  Sex: Female
  Weight: 40.1 kg

DRUGS (6)
  1. APAP TAB [Suspect]
     Indication: PRODUCT USED FOR UNKNOWN INDICATION
     Dosage: UNK
     Route: 048
  2. CLONAZEPAM [Concomitant]
     Dosage: UNK
  3. CARISOPRODOL [Concomitant]
     Dosage: UNK
  4. METOPROLOL SUCCINATE [Concomitant]
     Dosage: UNK
  5. IBUPROFEN [Suspect]
     Indication: PRODUCT USED FOR UNKNOWN INDICATION
     Dosage: UNK
     Route: 048
  6. FENTANYL [Concomitant]
     Dosage: UNK
     Route: 062

REACTIONS (3)
  - MULTIPLE DRUG OVERDOSE [None]
  - AGITATION [None]
  - INTENTIONAL SELF-INJURY [None]
